FAERS Safety Report 5138174-X (Version None)
Quarter: 2006Q4

REPORT INFORMATION
  Report Type: 
  Country: None (occurrence: None)
  Receive Date: 20061025
  Receipt Date: 20061025
  Transmission Date: 20070319
  Serious: Yes (Other)
  Sender: FDA-Public Use
  Company Number: None

PATIENT
  Age: 58 Year
  Sex: Male
  Weight: 76.2 kg

DRUGS (11)
  1. FINASTERIDE [Suspect]
  2. OXYCODONE / ACETAMINOPHEN [Concomitant]
  3. TERAZOSIN HCL [Concomitant]
  4. CILOSTAZOL [Concomitant]
  5. MENTHOL / METHYL SALICYLATE [Concomitant]
  6. RANITIDINE HCL [Concomitant]
  7. ASPIRIN [Concomitant]
  8. TIOTROPIUM [Concomitant]
  9. VARDENAFIL HCL [Concomitant]
  10. CAPSAICIN [Concomitant]
  11. ALBUTEROL [Concomitant]

REACTIONS (1)
  - RASH [None]
